FAERS Safety Report 8505510-3 (Version None)
Quarter: 2012Q2

REPORT INFORMATION
  Report Type: 
  Country: None (occurrence: None)
  Receive Date: 20120405
  Receipt Date: 20091005
  Transmission Date: 20120825
  Serious: Yes (Other)
  Sender: FDA-Public Use
  Company Number: PHEH2009US13050

PATIENT
  Sex: Female

DRUGS (2)
  1. RECLAST [Suspect]
     Dates: start: 20090805
  2. LEVOXYL [Concomitant]

REACTIONS (6)
  - HEADACHE [None]
  - INFLUENZA LIKE ILLNESS [None]
  - PYREXIA [None]
  - ARTHRALGIA [None]
  - ACTIVITIES OF DAILY LIVING IMPAIRED [None]
  - PAIN IN EXTREMITY [None]
